FAERS Safety Report 8428308-3 (Version None)
Quarter: 2012Q2

REPORT INFORMATION
  Report Type: 
  Country: None (occurrence: None)
  Receive Date: 20120611
  Receipt Date: 20070621
  Transmission Date: 20120825
  Serious: Yes (Hospitalization, Other)
  Sender: FDA-Public Use
  Company Number: PHFR2007GB03677

PATIENT
  Sex: Female

DRUGS (6)
  1. IMATINIB MESYLATE [Suspect]
     Indication: GASTROINTESTINAL STROMAL TUMOUR
     Dosage: UNK UKN, UNK
     Route: 065
     Dates: start: 20030201
  2. IMATINIB MESYLATE [Suspect]
     Dosage: 800 MG, DAILY
     Route: 048
  3. OXYNORM [Concomitant]
     Indication: ANALGESIC THERAPY
     Dosage: 5 MG, PRN
     Route: 048
     Dates: start: 20071129
  4. SPIRONOLACTONE [Concomitant]
     Indication: FLUID RETENTION
     Dosage: 50 MG, UNK
     Route: 048
     Dates: start: 20071128
  5. IMATINIB MESYLATE [Suspect]
     Dosage: 400 MG, DAILY
     Route: 048
  6. FUROSEMIDE [Concomitant]
     Indication: FLUID RETENTION
     Dosage: 40 MG, DAILY
     Route: 048
     Dates: start: 20070919, end: 20071129

REACTIONS (10)
  - VOMITING [None]
  - METASTASES TO LIVER [None]
  - OEDEMA [None]
  - NEOPLASM PROGRESSION [None]
  - HAEMATEMESIS [None]
  - NEOPLASM MALIGNANT [None]
  - DIARRHOEA [None]
  - NEUTROPENIA [None]
  - ASCITES [None]
  - BLOOD POTASSIUM DECREASED [None]
